FAERS Safety Report 6081018-2 (Version None)
Quarter: 2009Q1

REPORT INFORMATION
  Report Type: 
  Country: None (occurrence: None)
  Receive Date: 20090217
  Receipt Date: 20090206
  Transmission Date: 20090719
  Serious: Yes (Other)
  Sender: FDA-Public Use
  Company Number: PHHY2009HU04511

PATIENT
  Sex: Female
  Weight: 77 kg

DRUGS (1)
  1. VOLTAREN OPHTHA CD (NVO) [Suspect]
     Indication: POSTOPERATIVE CARE
     Dosage: 4 UNK, UNK

REACTIONS (4)
  - CONJUNCTIVAL OEDEMA [None]
  - EYE PAIN [None]
  - EYELID OEDEMA [None]
  - LACRIMATION INCREASED [None]
